FAERS Safety Report 5888568-X (Version None)
Quarter: 2008Q3

REPORT INFORMATION
  Report Type: 
  Country: None (occurrence: None)
  Receive Date: 20080918
  Receipt Date: 20080827
  Transmission Date: 20090109
  Serious: No
  Sender: FDA-Public Use
  Company Number: US-B.I. PHARMACEUTICALS,INC./RIDGEFIELD-2008-BP-13845BP

PATIENT
  Sex: Male

DRUGS (4)
  1. FLOMAX [Suspect]
     Indication: BENIGN PROSTATIC HYPERPLASIA
     Dosage: .4MG
     Route: 048
     Dates: start: 20080701
  2. AMBIEN [Concomitant]
  3. LESCOL [Concomitant]
  4. ASPIRIN [Concomitant]
     Dosage: 81MG

REACTIONS (2)
  - HEART RATE INCREASED [None]
  - LETHARGY [None]
